FAERS Safety Report 19052458 (Version 1)
Quarter: 2021Q1

REPORT INFORMATION
  Report Type: Spontaneous
  Country: US (occurrence: US)
  Receive Date: 20210324
  Receipt Date: 20210324
  Transmission Date: 20210420
  Serious: No
  Sender: FDA-Public Use
  Company Number: US-ASTRAZENECA-2021A127111

PATIENT
  Sex: Male

DRUGS (1)
  1. CALQUENCE [Suspect]
     Active Substance: ACALABRUTINIB
     Indication: CHRONIC LYMPHOCYTIC LEUKAEMIA
     Route: 048
     Dates: start: 20200625

REACTIONS (7)
  - Contusion [Unknown]
  - Stomatitis [Recovered/Resolved]
  - Ocular hyperaemia [Unknown]
  - Skin ulcer [Unknown]
  - Eye haemorrhage [Unknown]
  - Cough [Unknown]
  - Pain [Recovered/Resolved]
